FAERS Safety Report 6240172-X (Version None)
Quarter: 2009Q2

REPORT INFORMATION
  Report Type: 
  Country: None (occurrence: None)
  Receive Date: 20090623
  Receipt Date: 20090615
  Transmission Date: 20091009
  Serious: Yes (Other)
  Sender: FDA-Public Use
  Company Number: RU-JNJFOC-20090604725

PATIENT
  Age: 42 Year
  Sex: Female

DRUGS (3)
  1. TOPAMAX [Suspect]
     Indication: EPILEPSY
     Route: 048
  2. PHENOBARBITALUM [Concomitant]
     Indication: DRUG USE FOR UNKNOWN INDICATION
  3. BENZOBARBITAL [Concomitant]
     Indication: DRUG USE FOR UNKNOWN INDICATION

REACTIONS (7)
  - ABDOMINAL PAIN UPPER [None]
  - EPILEPSY [None]
  - HALLUCINATION [None]
  - HEPATIC PAIN [None]
  - POLYURIA [None]
  - RENAL IMPAIRMENT [None]
  - SPEECH DISORDER [None]
